FAERS Safety Report 7846383-1 (Version None)
Quarter: 2011Q4

REPORT INFORMATION
  Report Type: 
  Country: None (occurrence: None)
  Receive Date: 20111025
  Receipt Date: 20111025
  Transmission Date: 20120403
  Serious: Yes (Other)
  Sender: FDA-Public Use
  Company Number: None

PATIENT
  Sex: Female
  Weight: 49.895 kg

DRUGS (1)
  1. ORTHO EVRA [Suspect]
     Indication: MENSTRUATION IRREGULAR
     Dosage: ONE PATCH SWITCHED EACH MONTH

REACTIONS (4)
  - DYSPNOEA [None]
  - PAIN IN EXTREMITY [None]
  - CHEST PAIN [None]
  - MUSCULOSKELETAL PAIN [None]
